FAERS Safety Report 15341274 (Version 1)
Quarter: 2018Q3

REPORT INFORMATION
  Report Type: Report from Study
  Country: None (occurrence: US)
  Receive Date: 20180831
  Receipt Date: 20180831
  Transmission Date: 20181010
  Serious: Yes (Other)
  Sender: FDA-Public Use
  Company Number: US-ABBVIE-18K-163-2442795-00

PATIENT
  Age: 45 Year
  Sex: Female
  Weight: 90.35 kg

DRUGS (7)
  1. DULOXETINE. [Concomitant]
     Active Substance: DULOXETINE
     Indication: DEPRESSION
  2. VESICARE [Concomitant]
     Active Substance: SOLIFENACIN SUCCINATE
     Indication: HYPERTONIC BLADDER
  3. HUMIRA [Suspect]
     Active Substance: ADALIMUMAB
     Indication: PSORIATIC ARTHROPATHY
     Route: 058
     Dates: start: 201705, end: 201804
  4. LYRICA [Concomitant]
     Active Substance: PREGABALIN
     Indication: FIBROMYALGIA
  5. CLARITIN [Concomitant]
     Active Substance: LORATADINE
     Indication: HYPERSENSITIVITY
  6. HUMIRA [Suspect]
     Active Substance: ADALIMUMAB
     Route: 058
     Dates: start: 20180710
  7. DULOXETINE. [Concomitant]
     Active Substance: DULOXETINE
     Indication: PAIN

REACTIONS (6)
  - Arthritis [Recovering/Resolving]
  - Tendon rupture [Recovered/Resolved]
  - Exostosis [Recovered/Resolved]
  - Post procedural swelling [Recovering/Resolving]
  - Pain [Recovered/Resolved]
  - Post procedural complication [Recovering/Resolving]

NARRATIVE: CASE EVENT DATE: 201712
